FAERS Safety Report 15484849 (Version 2)
Quarter: 2019Q4

REPORT INFORMATION
  Report Type: Spontaneous
  Country: US (occurrence: US)
  Receive Date: 20181010
  Receipt Date: 20191022
  Transmission Date: 20200122
  Serious: No
  Sender: FDA-Public Use
  Company Number: US-ROCHE-2064960

PATIENT
  Age: 50 Year
  Sex: Male

DRUGS (2)
  1. COTELLIC [Suspect]
     Active Substance: COBIMETINIB
     Indication: METASTATIC SALIVARY GLAND CANCER
     Route: 065
     Dates: start: 2018, end: 2018
  2. ZELBORAF [Suspect]
     Active Substance: VEMURAFENIB
     Indication: METASTATIC SALIVARY GLAND CANCER
     Route: 065
     Dates: start: 2018, end: 2018

REACTIONS (6)
  - Rash maculo-papular [Recovering/Resolving]
  - Off label use [Unknown]
  - Diarrhoea [Unknown]
  - Asthenia [Unknown]
  - Fatigue [Unknown]
  - Intentional product use issue [Unknown]

NARRATIVE: CASE EVENT DATE: 2018
